FAERS Safety Report 25396670 (Version 1)
Quarter: 2025Q2

REPORT INFORMATION
  Report Type: Spontaneous
  Country: US (occurrence: None)
  Receive Date: 20250604
  Receipt Date: 20250604
  Transmission Date: 20250716
  Serious: Yes (Disabling)
  Sender: FDA-CTU
  Company Number: None

PATIENT
  Age: 59 Year
  Sex: Male
  Weight: 85.05 kg

DRUGS (3)
  1. CYMBALTA [Suspect]
     Active Substance: DULOXETINE HYDROCHLORIDE
     Indication: Depression
     Dates: start: 20080115, end: 20240117
  2. CYMBALTA [Suspect]
     Active Substance: DULOXETINE HYDROCHLORIDE
     Indication: Anxiety
  3. PROZAC [Suspect]
     Active Substance: FLUOXETINE HYDROCHLORIDE

REACTIONS (7)
  - Blunted affect [None]
  - Executive dysfunction [None]
  - Alcohol abuse [None]
  - Impaired work ability [None]
  - Sexual activity increased [None]
  - Withdrawal syndrome [None]
  - Product use complaint [None]

NARRATIVE: CASE EVENT DATE: 20240415
